FAERS Safety Report 12273686 (Version 2)
Quarter: 2016Q2

REPORT INFORMATION
  Report Type: Report from Study
  Country: TW (occurrence: TW)
  Receive Date: 20160415
  Receipt Date: 20160420
  Transmission Date: 20160815
  Serious: Yes (Hospitalization)
  Sender: FDA-Public Use
  Company Number: TW-ABBVIE-16K-153-1585828-00

PATIENT
  Age: 49 Year
  Sex: Female
  Weight: 49.7 kg

DRUGS (2)
  1. METHOTREXATE [Concomitant]
     Active Substance: METHOTREXATE
     Indication: PRODUCT USED FOR UNKNOWN INDICATION
     Route: 048
     Dates: end: 20160301
  2. HUMIRA [Suspect]
     Active Substance: ADALIMUMAB
     Indication: PSORIATIC ARTHROPATHY
     Route: 058
     Dates: start: 20150623, end: 20160301

REACTIONS (2)
  - Chills [Recovering/Resolving]
  - Intestinal tuberculosis [Not Recovered/Not Resolved]

NARRATIVE: CASE EVENT DATE: 20160305
